FAERS Safety Report 17056987 (Version 1)
Quarter: 2019Q4

REPORT INFORMATION
  Report Type: Report from Study
  Country: US (occurrence: US)
  Receive Date: 20191121
  Receipt Date: 20191121
  Transmission Date: 20200122
  Serious: Yes (Life-Threatening, Other)
  Sender: FDA-Public Use
  Company Number: US-ROCHE-1739213

PATIENT

DRUGS (1)
  1. BEVACIZUMAB. [Suspect]
     Active Substance: BEVACIZUMAB
     Indication: GLIOBLASTOMA
     Route: 065

REACTIONS (11)
  - Lymphocyte count decreased [Recovered/Resolved]
  - Muscular weakness [Recovered/Resolved]
  - Neutrophil count decreased [Recovered/Resolved]
  - Embolism [Recovered/Resolved]
  - Sepsis [Recovered/Resolved]
  - Platelet count decreased [Recovered/Resolved]
  - Seizure [Recovered/Resolved]
  - Rash pustular [Recovered/Resolved]
  - Pneumonia [Recovered/Resolved]
  - Localised oedema [Recovered/Resolved]
  - Proteinuria [Unknown]

NARRATIVE: CASE EVENT DATE: 20130423
